FAERS Safety Report 23470433 (Version 2)
Quarter: 2024Q2

REPORT INFORMATION
  Report Type: Spontaneous
  Country: JP (occurrence: JP)
  Receive Date: 20240202
  Receipt Date: 20240415
  Transmission Date: 20240716
  Serious: Yes (Hospitalization)
  Sender: FDA-Public Use
  Company Number: JP-PFIZER INC-PV202400013672

PATIENT
  Age: 55 Year
  Sex: Male
  Weight: 54.1 kg

DRUGS (11)
  1. INLYTA [Suspect]
     Active Substance: AXITINIB
     Indication: Metastatic renal cell carcinoma
     Dosage: 5 MG, 2X/DAY
     Route: 048
     Dates: start: 20231213, end: 20231227
  2. CABOMETYX [Suspect]
     Active Substance: CABOZANTINIB S-MALATE
     Indication: Metastatic renal cell carcinoma
     Dosage: 40 MG, 1X/DAY
     Route: 048
     Dates: start: 20231021, end: 20231213
  3. NAPROXEN [Concomitant]
     Active Substance: NAPROXEN
  4. BIO-THREE [Concomitant]
     Active Substance: HERBALS
  5. ALBUMIN TANNATE [Concomitant]
     Active Substance: ALBUMIN TANNATE
  6. LOPERAMIDE HYDROCHLORIDE [Concomitant]
     Active Substance: LOPERAMIDE HYDROCHLORIDE
  7. QUETIAPINE [Concomitant]
     Active Substance: QUETIAPINE
  8. ZOLPIDEM TARTRATE [Concomitant]
     Active Substance: ZOLPIDEM TARTRATE
  9. BROTIZOLAM [Concomitant]
     Active Substance: BROTIZOLAM
  10. CLOTIAZEPAM [Concomitant]
     Active Substance: CLOTIAZEPAM
  11. REBAMIPIDE [Concomitant]
     Active Substance: REBAMIPIDE

REACTIONS (7)
  - Hypothyroidism [Recovering/Resolving]
  - Pneumonia [Unknown]
  - Malaise [Recovering/Resolving]
  - Decreased appetite [Recovering/Resolving]
  - Tumour associated fever [Recovering/Resolving]
  - Diarrhoea [Unknown]
  - Vomiting [Unknown]

NARRATIVE: CASE EVENT DATE: 20231227
